FAERS Safety Report 5595795-8 (Version None)
Quarter: 2008Q1

REPORT INFORMATION
  Report Type: 
  Country: None (occurrence: None)
  Receive Date: 20080118
  Receipt Date: 20080110
  Transmission Date: 20080703
  Serious: Yes (Hospitalization)
  Sender: FDA-Public Use
  Company Number: D0055235A

PATIENT
  Age: 66 Year
  Sex: Female

DRUGS (6)
  1. ARIXTRA [Suspect]
     Indication: THROMBOSIS PROPHYLAXIS
     Dosage: 2.5MG TWICE PER DAY
     Route: 058
     Dates: start: 20060721, end: 20060810
  2. SINTROM [Concomitant]
     Indication: THROMBOSIS PROPHYLAXIS
     Route: 048
     Dates: end: 20060701
  3. L-THYROXIN [Concomitant]
     Dosage: 75UG UNKNOWN
     Route: 048
  4. ATACAND [Concomitant]
     Dosage: 16MG PER DAY
     Route: 048
  5. LASIX [Concomitant]
     Route: 065
  6. SPIRONOLACTONE [Concomitant]
     Dosage: 50MG PER DAY
     Route: 048

REACTIONS (6)
  - CARDIAC DISORDER [None]
  - CEREBRAL HAEMORRHAGE [None]
  - DIZZINESS [None]
  - FATIGUE [None]
  - HEADACHE [None]
  - OVERDOSE [None]
